FAERS Safety Report 8306621-8 (Version None)
Quarter: 2012Q1

REPORT INFORMATION
  Report Type: 
  Country: None (occurrence: None)
  Receive Date: 20120326
  Receipt Date: 20110310
  Transmission Date: 20120608
  Serious: Yes (Other)
  Sender: FDA-Public Use
  Company Number: PHHY2011US18896

PATIENT
  Age: 53 Year
  Sex: Male

DRUGS (1)
  1. TASIGNA [Suspect]
     Indication: CHRONIC MYELOID LEUKAEMIA
     Dosage: SEE IMAGE
     Route: 048
     Dates: start: 20101206

REACTIONS (5)
  - PNEUMONIA [None]
  - NAUSEA [None]
  - VOMITING [None]
  - DEHYDRATION [None]
  - DEPRESSION [None]
